FAERS Safety Report 21458161 (Version 5)
Quarter: 2022Q4

REPORT INFORMATION
  Report Type: Report from Study
  Country: US (occurrence: US)
  Receive Date: 20221014
  Receipt Date: 20221207
  Transmission Date: 20230112
  Serious: Yes (Hospitalization)
  Sender: FDA-Public Use
  Company Number: US-PFIZER INC-PV202200080972

PATIENT
  Age: 51 Year
  Sex: Male
  Weight: 144.22 kg

DRUGS (8)
  1. ABROCITINIB [Suspect]
     Active Substance: ABROCITINIB
     Indication: Dermatitis atopic
     Dosage: 200 MG, 1X/DAY (QD)
     Route: 048
     Dates: start: 20220717, end: 20221013
  2. PROAIR HFA [Concomitant]
     Active Substance: ALBUTEROL SULFATE
     Indication: Asthma
     Dosage: 90 UG, 2 PUFFS AS NEEDED (INH), ALBUTEROL
     Route: 055
     Dates: start: 2013
  3. LASIX [Concomitant]
     Active Substance: FUROSEMIDE
     Indication: Hypertension
     Dosage: 40 MG, AS NEEDED
     Route: 048
     Dates: start: 2018
  4. METFORMIN HYDROCHLORIDE [Concomitant]
     Active Substance: METFORMIN HYDROCHLORIDE
     Indication: Insulin resistance
     Dosage: 500 MG, 2X/DAY
     Route: 048
     Dates: start: 20211217
  5. METFORMIN HYDROCHLORIDE [Concomitant]
     Active Substance: METFORMIN HYDROCHLORIDE
     Indication: Type 2 diabetes mellitus
  6. DILTIAZEM [Concomitant]
     Active Substance: DILTIAZEM
     Indication: Atrial tachycardia
     Dosage: 120 MG, 1X/DAY
     Route: 048
     Dates: start: 20220221
  7. SINGULAIR [Concomitant]
     Active Substance: MONTELUKAST SODIUM
     Indication: Asthma
     Dosage: 10 MG, 1X/DAY
     Route: 048
     Dates: start: 2013
  8. LISINOPRIL [Concomitant]
     Active Substance: LISINOPRIL
     Indication: Hypertension
     Dosage: 40 MG, 1X/DAY
     Route: 048
     Dates: start: 2016

REACTIONS (3)
  - Cellulitis [Recovering/Resolving]
  - Abscess limb [Recovering/Resolving]
  - Osteomyelitis [Recovering/Resolving]

NARRATIVE: CASE EVENT DATE: 20220809
